FAERS Safety Report 4435275-6 (Version None)
Quarter: 2004Q3

REPORT INFORMATION
  Report Type: 
  Country: None (occurrence: None)
  Receive Date: 20040806
  Receipt Date: 20040806
  Transmission Date: 20050211
  Serious: No
  Sender: FDA-Public Use
  Company Number: None

PATIENT
  Age: 78 Year
  Sex: Female
  Weight: 70 kg

DRUGS (22)
  1. ZYPREXA [Suspect]
     Indication: AGITATION
     Dosage: SEE IMAGE
     Dates: start: 20040727, end: 20040803
  2. ZYPREXA [Suspect]
     Indication: ANXIETY
     Dosage: SEE IMAGE
     Dates: start: 20040727, end: 20040803
  3. ZYPREXA [Suspect]
     Indication: PARANOIA
     Dosage: SEE IMAGE
     Dates: start: 20040727, end: 20040803
  4. ZYPREXA [Suspect]
     Indication: AGITATION
     Dosage: SEE IMAGE
     Dates: start: 20040803, end: 20040804
  5. ZYPREXA [Suspect]
     Indication: ANXIETY
     Dosage: SEE IMAGE
     Dates: start: 20040803, end: 20040804
  6. ZYPREXA [Suspect]
     Indication: PARANOIA
     Dosage: SEE IMAGE
     Dates: start: 20040803, end: 20040804
  7. NOVOLIN 70/30 [Concomitant]
  8. GLUCERNA [Concomitant]
  9. DURAGESIC [Concomitant]
  10. FUROSEMIDE [Concomitant]
  11. KCL TAB [Concomitant]
  12. DILTIAZEM [Concomitant]
  13. XALATAN [Concomitant]
  14. METOPROLOL [Concomitant]
  15. ALPHAGAN [Concomitant]
  16. PREVACID [Concomitant]
  17. THERAVITE [Concomitant]
  18. FESO4 [Concomitant]
  19. ASCORBIC ACID [Concomitant]
  20. DOCUSATE [Concomitant]
  21. LOVENOX [Concomitant]
  22. ASPIRIN [Concomitant]

REACTIONS (1)
  - LIVER FUNCTION TEST ABNORMAL [None]
